FAERS Safety Report 6956583-0 (Version None)
Quarter: 2010Q3

REPORT INFORMATION
  Report Type: 
  Country: None (occurrence: None)
  Receive Date: 20100830
  Receipt Date: 20100817
  Transmission Date: 20110219
  Serious: Yes (Other)
  Sender: FDA-Public Use
  Company Number: GB-B.I. PHARMACEUTICALS,INC./RIDGEFIELD-2010-BP-08152YA

PATIENT
  Age: 83 Year
  Sex: Male

DRUGS (5)
  1. TAMSULOSIN HCL [Suspect]
  2. FINASTERIDE [Suspect]
  3. LANSOPRAZOLE [Suspect]
  4. CARBIMAZOLE [Suspect]
     Indication: HYPERTHYROIDISM
  5. ASPIRIN [Concomitant]

REACTIONS (3)
  - FATIGUE [None]
  - GYNAECOMASTIA [None]
  - HYPERTHYROIDISM [None]
